FAERS Safety Report 20067965 (Version 3)
Quarter: 2022Q1

REPORT INFORMATION
  Report Type: Report from Study
  Country: US (occurrence: US)
  Receive Date: 20211115
  Receipt Date: 20220207
  Transmission Date: 20220423
  Serious: Yes (Hospitalization)
  Sender: FDA-Public Use
  Company Number: US-ABBVIE-21K-163-4158315-00

PATIENT
  Age: 76 Year
  Sex: Female

DRUGS (4)
  1. RINVOQ [Suspect]
     Active Substance: UPADACITINIB
     Indication: Rheumatoid arthritis
     Route: 048
     Dates: start: 20210603, end: 20211007
  2. RINVOQ [Suspect]
     Active Substance: UPADACITINIB
     Route: 048
     Dates: start: 20211028
  3. MODERNA COVID-19 VACCINE [Concomitant]
     Active Substance: ELASOMERAN
     Indication: COVID-19 immunisation
     Route: 030
     Dates: start: 20210127, end: 20210127
  4. MODERNA COVID-19 VACCINE [Concomitant]
     Active Substance: ELASOMERAN
     Route: 030
     Dates: start: 20210224, end: 20210224

REACTIONS (11)
  - Haemoglobin decreased [Recovering/Resolving]
  - Dementia Alzheimer^s type [Recovered/Resolved]
  - Somnambulism [Unknown]
  - Sleep apnoea syndrome [Unknown]
  - Device use error [Unknown]
  - Hypersomnia [Not Recovered/Not Resolved]
  - Fatigue [Unknown]
  - Gait inability [Recovering/Resolving]
  - Hiatus hernia [Recovering/Resolving]
  - Arthralgia [Not Recovered/Not Resolved]
  - Gait disturbance [Recovered/Resolved]

NARRATIVE: CASE EVENT DATE: 20210710
